FAERS Safety Report 10462211 (Version 2)
Quarter: 2014Q3

REPORT INFORMATION
  Report Type: Report from Study
  Country: CA (occurrence: CA)
  Receive Date: 20140918
  Receipt Date: 20140921
  Transmission Date: 20150326
  Serious: Yes (Hospitalization, Other)
  Sender: FDA-Public Use
  Company Number: CA-BRISTOL-MYERS SQUIBB COMPANY-21378914

PATIENT
  Age: 57 Year
  Sex: Female

DRUGS (7)
  1. ORENCIA [Suspect]
     Active Substance: ABATACEPT
     Indication: PSORIASIS
     Route: 042
     Dates: start: 201110
  2. HYDROMORPHONE [Concomitant]
     Active Substance: HYDROMORPHONE
  3. TRAZODONE HYDROCHLORIDE. [Concomitant]
     Active Substance: TRAZODONE HYDROCHLORIDE
  4. ESTROGEN [Concomitant]
     Active Substance: ESTRONE\SUS SCROFA OVARY
  5. CLONAZEPAM. [Concomitant]
     Active Substance: CLONAZEPAM
  6. PROMETRIUM [Concomitant]
     Active Substance: PROGESTERONE
  7. DIOVAN [Concomitant]
     Active Substance: VALSARTAN

REACTIONS (5)
  - Angiopathy [Unknown]
  - Sinus tachycardia [Recovered/Resolved]
  - Fatigue [Unknown]
  - Drug administration error [Unknown]
  - Off label use [Unknown]

NARRATIVE: CASE EVENT DATE: 2014
